FAERS Safety Report 4493423-6 (Version None)
Quarter: 2004Q4

REPORT INFORMATION
  Report Type: 
  Country: None (occurrence: None)
  Receive Date: 20041104
  Receipt Date: 20041013
  Transmission Date: 20050328
  Serious: Yes (Death, Other)
  Sender: FDA-Public Use
  Company Number: JP-MERCK-0410USA02805

PATIENT
  Age: 87 Year
  Sex: Male
  Weight: 73 kg

DRUGS (14)
  1. PRIMAXIN [Suspect]
     Indication: PNEUMONIA
     Route: 042
     Dates: start: 20040908, end: 20040913
  2. PRIMAXIN [Suspect]
     Indication: CELLULITIS
     Route: 042
     Dates: start: 20040908, end: 20040913
  3. ALLOPURINOL [Concomitant]
     Indication: HYPERURICAEMIA
     Route: 048
     Dates: start: 20040915, end: 20040921
  4. LOXOPROFEN SODIUM [Concomitant]
     Indication: UPPER RESPIRATORY TRACT INFLAMMATION
     Route: 048
     Dates: start: 20040915, end: 20040921
  5. CEFOTIAM HYDROCHLORIDE [Concomitant]
     Indication: PNEUMONIA
     Route: 042
     Dates: start: 20040903, end: 20040907
  6. VITAMIN E NICOTINATE [Concomitant]
     Indication: BACK PAIN
     Route: 048
     Dates: end: 20040921
  7. TIZANIDINE HYDROCHLORIDE [Concomitant]
     Route: 048
     Dates: start: 20020926, end: 20040921
  8. MECOBALAMIN [Concomitant]
     Indication: BACK PAIN
     Route: 048
     Dates: end: 20040923
  9. AROTINOLOL HYDROCHLORIDE [Concomitant]
     Indication: HYPERTENSION
     Route: 048
     Dates: start: 19990909, end: 20040922
  10. BIOFERMIN [Concomitant]
     Indication: DIARRHOEA
     Route: 048
     Dates: start: 20040916, end: 20040921
  11. ASPIRIN [Concomitant]
     Indication: CEREBRAL INFARCTION
     Route: 048
     Dates: start: 20020822, end: 20040915
  12. NIFEDIPINE [Concomitant]
     Indication: HYPERTENSION
     Route: 048
     Dates: start: 20030403, end: 20040915
  13. TEPRENONE [Concomitant]
     Indication: GASTRITIS
     Route: 048
     Dates: start: 20040915, end: 20040923
  14. FAMOTIDINE [Concomitant]
     Indication: GASTRITIS
     Route: 048
     Dates: start: 20040922, end: 20040923

REACTIONS (16)
  - ABDOMINAL TENDERNESS [None]
  - ALANINE AMINOTRANSFERASE INCREASED [None]
  - ANOREXIA [None]
  - APHAGIA [None]
  - ASPARTATE AMINOTRANSFERASE INCREASED [None]
  - BLOOD BILIRUBIN INCREASED [None]
  - BLOOD CHLORIDE DECREASED [None]
  - BLOOD LACTATE DEHYDROGENASE INCREASED [None]
  - BLOOD PRESSURE DECREASED [None]
  - CONSTIPATION [None]
  - GAMMA-GLUTAMYLTRANSFERASE INCREASED [None]
  - HEPATIC FUNCTION ABNORMAL [None]
  - HYPERAMMONAEMIA [None]
  - MULTI-ORGAN FAILURE [None]
  - RENAL IMPAIRMENT [None]
  - STOMATITIS [None]
